FAERS Safety Report 5902585-2 (Version None)
Quarter: 2008Q3

REPORT INFORMATION
  Report Type: 
  Country: None (occurrence: None)
  Receive Date: 20080924
  Receipt Date: 20080913
  Transmission Date: 20090109
  Serious: Yes (Hospitalization)
  Sender: FDA-Public Use
  Company Number: APP200800798

PATIENT
  Age: 77 Year
  Sex: Male

DRUGS (3)
  1. IRINOTECAN HCL [Suspect]
     Indication: COLON CANCER
     Dosage: 130 MG/M2
  2. FLUOROURACIL INJ [Suspect]
     Indication: COLON CANCER
     Dosage: 350 MG/M2, INTRAVENOUS BOLUS; 2300 MG/M2, INTRAVENOUS  DRIP
  3. LEUCOVORIN CALCIUM [Suspect]
     Indication: COLON CANCER
     Dosage: 200 MG/M2

REACTIONS (2)
  - ANAEMIA [None]
  - CYTOMEGALOVIRUS COLITIS [None]
